FAERS Safety Report 8504239-5 (Version None)
Quarter: 2012Q2

REPORT INFORMATION
  Report Type: 
  Country: None (occurrence: None)
  Receive Date: 20120405
  Receipt Date: 20090414
  Transmission Date: 20120825
  Serious: Yes (Other)
  Sender: FDA-Public Use
  Company Number: PHEH2009US03942

PATIENT
  Sex: Female

DRUGS (1)
  1. RECLAST [Suspect]
     Dosage: INFUSION
     Dates: start: 20090409

REACTIONS (9)
  - DEFORMITY [None]
  - URTICARIA [None]
  - NAUSEA [None]
  - INFLUENZA LIKE ILLNESS [None]
  - VOMITING [None]
  - MUSCULAR WEAKNESS [None]
  - ARTHRALGIA [None]
  - ABASIA [None]
  - PYREXIA [None]
